FAERS Safety Report 20837376 (Version 1)
Quarter: 2022Q2

REPORT INFORMATION
  Report Type: Spontaneous
  Country: GR (occurrence: GR)
  Receive Date: 20220517
  Receipt Date: 20220517
  Transmission Date: 20220721
  Serious: Yes (Death, Hospitalization, Other)
  Sender: FDA-Public Use
  Company Number: GR-ABBVIE-22K-066-4395968-00

PATIENT
  Age: 81 Year
  Sex: Male

DRUGS (20)
  1. VENETOCLAX [Suspect]
     Active Substance: VENETOCLAX
     Indication: Acute myeloid leukaemia
     Dosage: CYCLE 1
     Route: 048
     Dates: start: 20200214, end: 20200309
  2. VENETOCLAX [Suspect]
     Active Substance: VENETOCLAX
     Dosage: CYCLE 2
     Route: 048
     Dates: start: 20200330
  3. VENETOCLAX [Suspect]
     Active Substance: VENETOCLAX
     Dosage: CYCLE 3
     Route: 048
     Dates: start: 20200427, end: 20200512
  4. VENETOCLAX [Suspect]
     Active Substance: VENETOCLAX
     Route: 048
     Dates: start: 20200525, end: 20200619
  5. VENETOCLAX [Suspect]
     Active Substance: VENETOCLAX
     Route: 048
     Dates: end: 20200721
  6. AZACITIDINE [Concomitant]
     Active Substance: AZACITIDINE
     Indication: Acute myeloid leukaemia
     Dates: start: 20200214, end: 20200309
  7. AZACITIDINE [Concomitant]
     Active Substance: AZACITIDINE
     Dosage: CYCLE 2
     Dates: start: 20200330
  8. AZACITIDINE [Concomitant]
     Active Substance: AZACITIDINE
     Dosage: CYCLE 3
     Dates: start: 20200427
  9. AZACITIDINE [Concomitant]
     Active Substance: AZACITIDINE
     Dates: start: 20200525, end: 20200619
  10. AZACITIDINE [Concomitant]
     Active Substance: AZACITIDINE
     Dates: end: 20200721
  11. VALSARTAN [Concomitant]
     Active Substance: VALSARTAN
     Indication: Coronary artery disease
     Route: 048
  12. CARVEDILOL [Concomitant]
     Active Substance: CARVEDILOL
     Indication: Coronary artery disease
     Dosage: 12.5 MG UNIT DOSE
     Route: 048
     Dates: end: 20200214
  13. LERCANIDIPINE [Concomitant]
     Active Substance: LERCANIDIPINE
     Indication: Coronary artery disease
     Route: 048
  14. SIMVASTATIN [Concomitant]
     Active Substance: SIMVASTATIN
     Indication: Coronary artery disease
     Route: 048
  15. ASPIRIN [Concomitant]
     Active Substance: ASPIRIN
     Indication: Coronary artery disease
     Route: 048
  16. ACENOCOUMAROL [Concomitant]
     Active Substance: ACENOCOUMAROL
     Indication: Ischaemic stroke
  17. ACENOCOUMAROL [Concomitant]
     Active Substance: ACENOCOUMAROL
     Indication: Atrial fibrillation
     Dates: start: 20200604, end: 20200713
  18. ALFUZOSIN [Concomitant]
     Active Substance: ALFUZOSIN
     Indication: Prostate cancer
     Route: 048
  19. HYDROXYUREA [Concomitant]
     Active Substance: HYDROXYUREA
     Indication: Polycythaemia vera
     Route: 048
  20. METOPROLOL [Concomitant]
     Active Substance: METOPROLOL
     Indication: Coronary artery disease
     Route: 048
     Dates: start: 20200214

REACTIONS (19)
  - Cerebral haemorrhage [Fatal]
  - Cerebrovascular accident [Fatal]
  - Diverticulitis [Unknown]
  - Altered state of consciousness [Recovered/Resolved]
  - Acute myeloid leukaemia recurrent [Unknown]
  - Cholinergic syndrome [Recovered/Resolved]
  - Scrotal swelling [Recovered/Resolved]
  - Haemoglobin abnormal [Unknown]
  - Blood urea abnormal [Unknown]
  - Blood potassium abnormal [Unknown]
  - Skin infection [Unknown]
  - Diarrhoea [Recovered/Resolved]
  - Thrombocytopenia [Unknown]
  - Platelet count decreased [Unknown]
  - Neutrophil count decreased [Recovering/Resolving]
  - Platelet count decreased [Recovered/Resolved]
  - Neutropenia [Recovered/Resolved]
  - Thrombocytopenia [Recovered/Resolved]
  - Neutropenia [Unknown]

NARRATIVE: CASE EVENT DATE: 20200215
